FAERS Safety Report 6347223-2 (Version None)
Quarter: 2009Q3

REPORT INFORMATION
  Report Type: 
  Country: None (occurrence: None)
  Receive Date: 20090910
  Receipt Date: 20090908
  Transmission Date: 20100115
  Serious: Yes (Disabling)
  Sender: FDA-Public Use
  Company Number: PHHY2009FR28354

PATIENT
  Age: 80 Year
  Sex: Female

DRUGS (1)
  1. EXELON [Suspect]
     Indication: DEMENTIA WITH LEWY BODIES
     Dosage: 1 DF, QD

REACTIONS (4)
  - DERMATITIS ALLERGIC [None]
  - EXTRAPYRAMIDAL DISORDER [None]
  - GAIT DISTURBANCE [None]
  - PLEUROTHOTONUS [None]
